FAERS Safety Report 17226762 (Version 2)
Quarter: 2020Q1

REPORT INFORMATION
  Report Type: Report from Study
  Country: None (occurrence: US)
  Receive Date: 20200102
  Receipt Date: 20200309
  Transmission Date: 20200409
  Serious: Yes (Other)
  Sender: FDA-Public Use
  Company Number: US-ABBVIE-19K-163-3216172-00

PATIENT
  Age: 71 Year
  Sex: Male

DRUGS (4)
  1. VENCLEXTA [Suspect]
     Active Substance: VENETOCLAX
     Dosage: DOSAGE DECREASED
     Route: 048
  2. VENCLEXTA [Suspect]
     Active Substance: VENETOCLAX
     Dosage: DOSE INCREASED
     Route: 048
     Dates: start: 20200228
  3. VENCLEXTA [Suspect]
     Active Substance: VENETOCLAX
     Indication: CHRONIC LYMPHOCYTIC LEUKAEMIA
     Route: 048
  4. VENCLEXTA [Suspect]
     Active Substance: VENETOCLAX
     Route: 048

REACTIONS (12)
  - Adverse drug reaction [Unknown]
  - Back pain [Not Recovered/Not Resolved]
  - Spinal operation [Recovering/Resolving]
  - Retching [Recovered/Resolved]
  - Rhinorrhoea [Unknown]
  - Influenza [Recovering/Resolving]
  - Basal cell carcinoma [Not Recovered/Not Resolved]
  - Feeling abnormal [Unknown]
  - Pain in extremity [Recovered/Resolved]
  - Nasopharyngitis [Recovering/Resolving]
  - Seasonal allergy [Unknown]
  - Allergic sinusitis [Recovering/Resolving]

NARRATIVE: CASE EVENT DATE: 20190628
